FAERS Safety Report 10340763 (Version 1)
Quarter: 2014Q3

REPORT INFORMATION
  Report Type: Spontaneous
  Country: FR (occurrence: None)
  Receive Date: 20140722
  Receipt Date: 20140722
  Transmission Date: 20150326
  Serious: Yes (Hospitalization)
  Sender: FDA-Public Use
  Company Number: 2014COV00072

PATIENT
  Age: 26 Year
  Sex: Female

DRUGS (7)
  1. SALAZOPYRINE [Suspect]
     Active Substance: SULFASALAZINE
     Indication: RHEUMATOID ARTHRITIS
     Dates: start: 20140415, end: 20140515
  2. DOLIPRANE [Concomitant]
     Active Substance: ACETAMINOPHEN
  3. PRIMPERAN [Concomitant]
     Active Substance: METOCLOPRAMIDE HYDROCHLORIDE
  4. NSAID^S (NSAID^S) [Concomitant]
     Active Substance: UNSPECIFIED INGREDIENT
  5. LOVENOX [Concomitant]
     Active Substance: ENOXAPARIN SODIUM
  6. PNEUMO 23 VACCINE (PNEUMOCOCCAL (POLYSACCHARIDE) (23 SEROTYPES) VACCINE) [Concomitant]
  7. PLAQUENIL [Suspect]
     Active Substance: HYDROXYCHLOROQUINE SULFATE
     Indication: RHEUMATOID ARTHRITIS
     Dates: start: 20140415, end: 20140515

REACTIONS (16)
  - Face oedema [None]
  - Eczema [None]
  - Abdominal pain upper [None]
  - Eosinophil count increased [None]
  - Pruritus [None]
  - Heart rate increased [None]
  - Rash pustular [None]
  - Asthenia [None]
  - Hepatocellular injury [None]
  - Pyrexia [None]
  - Lymphadenopathy [None]
  - Headache [None]
  - Rash [None]
  - Drug reaction with eosinophilia and systemic symptoms [None]
  - Haemoglobin decreased [None]
  - Dermatitis [None]

NARRATIVE: CASE EVENT DATE: 20140514
